FAERS Safety Report 19222054 (Version 1)
Quarter: 2021Q2

REPORT INFORMATION
  Report Type: Spontaneous
  Country: FR (occurrence: FR)
  Receive Date: 20210505
  Receipt Date: 20210505
  Transmission Date: 20210717
  Serious: Yes (Hospitalization, Other)
  Sender: FDA-Public Use
  Company Number: FR-ELI_LILLY_AND_COMPANY-FR202104014098

PATIENT
  Age: 58 Year
  Sex: Female

DRUGS (3)
  1. PEMETREXED. [Suspect]
     Active Substance: PEMETREXED
     Indication: NON-SMALL CELL LUNG CANCER
     Dosage: UNK, CYCLICAL
     Route: 065
  2. PEMETREXED. [Suspect]
     Active Substance: PEMETREXED
     Dosage: 500 MG/M2, CYCLICAL (EVERY THREE WEEKS)
     Route: 065
  3. CISPLATIN. [Suspect]
     Active Substance: CISPLATIN
     Indication: NON-SMALL CELL LUNG CANCER
     Dosage: UNK, CYCLICAL
     Route: 065

REACTIONS (5)
  - Sclerodactylia [Recovered/Resolved]
  - Peripheral ischaemia [Recovered/Resolved]
  - Endothelial dysfunction [Recovered/Resolved]
  - Anaemia macrocytic [Recovered/Resolved]
  - Raynaud^s phenomenon [Recovered/Resolved]
